FAERS Safety Report 25932222 (Version 1)
Quarter: 2025Q4

REPORT INFORMATION
  Report Type: Report from Study
  Country: CA (occurrence: CA)
  Receive Date: 20251016
  Receipt Date: 20251016
  Transmission Date: 20260118
  Serious: Yes (Death)
  Sender: ABBVIE
  Company Number: CA-ABBVIE-6505397

PATIENT
  Age: 85 Year
  Sex: Male

DRUGS (1)
  1. LUPRON [Suspect]
     Active Substance: LEUPROLIDE ACETATE
     Indication: Prostate cancer
     Dosage: BATCH/LOT NUMBER 18 SEP 2025?FORM STRENGTH 30 MG?SOLUTION FOR INJECTION IN PRE-FILLED SYRINGE
     Route: 065
     Dates: start: 20200428, end: 20250702

REACTIONS (1)
  - Death [Fatal]

NARRATIVE: CASE EVENT DATE: 20251002
